FAERS Safety Report 24391750 (Version 1)
Quarter: 2024Q4

REPORT INFORMATION
  Report Type: Spontaneous
  Country: US (occurrence: US)
  Receive Date: 20241003
  Receipt Date: 20241003
  Transmission Date: 20250114
  Serious: Yes (Hospitalization)
  Sender: INCYTE
  Company Number: US-INCYTE CORPORATION-2024IN010318

PATIENT

DRUGS (5)
  1. JAKAFI [Suspect]
     Active Substance: RUXOLITINIB
     Indication: Chronic graft versus host disease
     Dosage: UNK
     Route: 065
  2. BELUMOSUDIL [Concomitant]
     Active Substance: BELUMOSUDIL
     Indication: Chronic graft versus host disease
     Dosage: UNK
     Route: 065
  3. DOXORUBICIN [Concomitant]
     Active Substance: DOXORUBICIN
     Indication: Chronic graft versus host disease
     Dosage: UNK
     Route: 065
  4. FLUOROURACIL [Concomitant]
     Active Substance: FLUOROURACIL
     Indication: Chronic graft versus host disease
     Dosage: UNK
     Route: 065
  5. MITOMYCIN [Concomitant]
     Active Substance: MITOMYCIN
     Indication: Chronic graft versus host disease
     Dosage: UNK
     Route: 065

REACTIONS (2)
  - Disease complication [Unknown]
  - Drug ineffective [Unknown]
